FAERS Safety Report 5863313-2 (Version None)
Quarter: 2008Q3

REPORT INFORMATION
  Report Type: 
  Country: None (occurrence: None)
  Receive Date: 20080828
  Receipt Date: 20080818
  Transmission Date: 20090109
  Serious: Yes (Hospitalization)
  Sender: FDA-Public Use
  Company Number: PHNU2008DE01087

PATIENT
  Sex: Male

DRUGS (6)
  1. EXELON [Suspect]
     Indication: DEMENTIA
     Dosage: 4.6 MG/24HR PATCH
     Route: 062
     Dates: start: 20071203
  2. EXELON [Suspect]
     Dosage: 9.5 MG/24HR PATCH
     Route: 062
     Dates: start: 20080102
  3. COMTESS [Suspect]
     Indication: PARKINSON'S DISEASE
     Dosage: 4 DOSAGES DAILY
     Route: 048
     Dates: start: 20070101
  4. LEVOPAR 125 [Suspect]
     Indication: PARKINSON'S DISEASE
     Dosage: 4 DOSAGES DAILY
     Route: 048
     Dates: start: 20070101
  5. SEROQUEL [Concomitant]
     Indication: DEPRESSION
     Dosage: 25 MG/DAY
     Route: 048
     Dates: start: 20070101
  6. CIPRALEX [Concomitant]
     Indication: DEPRESSION
     Dosage: 10 MG/DAY
     Route: 048
     Dates: start: 20070101

REACTIONS (3)
  - AGGRESSION [None]
  - CONFUSIONAL STATE [None]
  - PSYCHOTIC DISORDER [None]
